FAERS Safety Report 9585808 (Version 1)
Quarter: 2013Q4

REPORT INFORMATION
  Report Type: Report from Study
  Country: US (occurrence: US)
  Receive Date: 20131003
  Receipt Date: 20131003
  Transmission Date: 20140711
  Serious: Yes (Death, Hospitalization, Other)
  Sender: FDA-Public Use
  Company Number: US-BRISTOL-MYERS SQUIBB COMPANY-19473958

PATIENT
  Age: 58 Year
  Sex: Male
  Weight: 108.2 kg

DRUGS (1)
  1. ERBITUX [Suspect]
     Indication: BLADDER CANCER
     Dosage: RECENT INC:4NOV10
     Route: 042
     Dates: start: 20091021

REACTIONS (3)
  - Respiratory failure [Fatal]
  - Lung infiltration [Fatal]
  - Renal failure acute [Unknown]
